FAERS Safety Report 9827234 (Version 2)
Quarter: 2014Q4

REPORT INFORMATION
  Report Type: Spontaneous
  Country: DK (occurrence: DK)
  Receive Date: 20140117
  Receipt Date: 20141217
  Transmission Date: 20150529
  Serious: Yes (Other)
  Sender: FDA-Public Use
  Company Number: DK-PFIZER INC-2014011940

PATIENT
  Age: 60 Year
  Sex: Male

DRUGS (5)
  1. SENDOXAN [Suspect]
     Active Substance: CYCLOPHOSPHAMIDE
     Indication: B-CELL LYMPHOMA
     Dosage: 1500 MG, UNK
     Route: 042
     Dates: start: 2012, end: 20120723
  2. ONCOVIN [Suspect]
     Active Substance: VINCRISTINE SULFATE
     Indication: B-CELL LYMPHOMA
     Dosage: 2 MG, UNK
     Route: 042
     Dates: start: 2012, end: 20120723
  3. ADRIAMYCIN [Suspect]
     Active Substance: DOXORUBICIN HYDROCHLORIDE
     Indication: B-CELL LYMPHOMA
     Dosage: 100 MG, UNK
     Route: 042
     Dates: start: 2012, end: 20120723
  4. MABTHERA [Suspect]
     Active Substance: RITUXIMAB
     Indication: B-CELL LYMPHOMA
     Dosage: 700 MG, UNK
     Route: 042
     Dates: start: 2012, end: 20120723
  5. PREDNISOLON [Suspect]
     Active Substance: PREDNISOLONE
     Indication: B-CELL LYMPHOMA
     Dosage: 100 MG, UNK
     Route: 048
     Dates: start: 2012, end: 20120723

REACTIONS (6)
  - Cerebral atrophy [Unknown]
  - Confusional state [Unknown]
  - Herpes simplex encephalitis [Recovered/Resolved]
  - Memory impairment [Unknown]
  - Brain injury [Unknown]
  - Aphasia [Unknown]

NARRATIVE: CASE EVENT DATE: 20120726
